FAERS Safety Report 23679252 (Version 6)
Quarter: 2024Q3

REPORT INFORMATION
  Report Type: Spontaneous
  Country: AR (occurrence: AR)
  Receive Date: 20240327
  Receipt Date: 20240912
  Transmission Date: 20241017
  Serious: Yes (Other)
  Sender: BIOMARIN
  Company Number: AR-SA-2024SA089591

PATIENT

DRUGS (4)
  1. LARONIDASE [Suspect]
     Active Substance: LARONIDASE
     Indication: Mucopolysaccharidosis I
     Dosage: 2.9 MG/5 ML, QW
     Route: 042
     Dates: end: 20240315
  2. LARONIDASE [Suspect]
     Active Substance: LARONIDASE
     Dosage: 11.6 MG, Q8D
     Route: 042
     Dates: end: 20240717
  3. LARONIDASE [Suspect]
     Active Substance: LARONIDASE
     Dosage: 11.6 MG, QW
     Route: 042
     Dates: start: 2024, end: 20240815
  4. DIPHENHYDRAMINE [Concomitant]
     Active Substance: DIPHENHYDRAMINE
     Indication: Product used for unknown indication
     Dosage: UNK

REACTIONS (6)
  - Seizure [Recovered/Resolved]
  - Blood pressure increased [Unknown]
  - Heart rate increased [Unknown]
  - Seizure [Unknown]
  - Seizure [Recovered/Resolved]
  - Secretion discharge [Unknown]

NARRATIVE: CASE EVENT DATE: 20240315
